FAERS Safety Report 7768555-7 (Version None)
Quarter: 2011Q3

REPORT INFORMATION
  Report Type: 
  Country: None (occurrence: None)
  Receive Date: 20110922
  Receipt Date: 20110207
  Transmission Date: 20111222
  Serious: No
  Sender: FDA-Public Use
  Company Number: US-ASTRAZENECA-2011SE07403

PATIENT
  Age: 41 Year
  Sex: Female
  Weight: 124.7 kg

DRUGS (14)
  1. SEROQUEL [Suspect]
     Indication: BIPOLAR I DISORDER
     Route: 048
     Dates: start: 20100610
  2. FELDENE [Concomitant]
  3. PERCOCET [Concomitant]
  4. DURAGESIC-100 [Concomitant]
  5. NOVOLOG [Concomitant]
     Dosage: 70/30
  6. RELPAX [Concomitant]
     Indication: MIGRAINE
  7. XANAX [Concomitant]
  8. METFORMIN [Concomitant]
  9. LEVOTHYROXINE SODIUM [Concomitant]
  10. SEROQUEL [Suspect]
     Route: 048
  11. CARAFATE [Concomitant]
     Indication: ULCER
  12. TOPAMAX [Concomitant]
  13. LEVEMIR [Concomitant]
  14. SAVALLA [Concomitant]

REACTIONS (4)
  - SOMNOLENCE [None]
  - APHAGIA [None]
  - DRUG DOSE OMISSION [None]
  - IRRITABILITY [None]
